FAERS Safety Report 10426845 (Version 2)
Quarter: 2014Q3

REPORT INFORMATION
  Report Type: Spontaneous
  Country: US (occurrence: US)
  Receive Date: 20140903
  Receipt Date: 20140903
  Transmission Date: 20150326
  Serious: Yes (Hospitalization)
  Sender: FDA-Public Use
  Company Number: US-009507513-2011SP027543

PATIENT
  Sex: Female
  Weight: 56.69 kg

DRUGS (2)
  1. NUVARING [Suspect]
     Active Substance: ETHINYL ESTRADIOL\ETONOGESTREL
     Indication: CONTRACEPTION
  2. NUVARING [Suspect]
     Active Substance: ETHINYL ESTRADIOL\ETONOGESTREL
     Indication: MENSTRUAL CYCLE MANAGEMENT
     Dosage: UNK
     Route: 067
     Dates: start: 200904, end: 20090629

REACTIONS (6)
  - Anaemia [Unknown]
  - Thrombophlebitis superficial [Unknown]
  - Deep vein thrombosis [Not Recovered/Not Resolved]
  - Uterine leiomyoma [Unknown]
  - Ovarian enlargement [Unknown]
  - Off label use [Unknown]

NARRATIVE: CASE EVENT DATE: 200906
